FAERS Safety Report 9822001 (Version 2)
Quarter: 2014Q2

REPORT INFORMATION
  Report Type: Report from Study
  Country: JP (occurrence: JP)
  Receive Date: 20140116
  Receipt Date: 20140522
  Transmission Date: 20141212
  Serious: Yes (Hospitalization)
  Sender: FDA-Public Use
  Company Number: JP-JNJFOC-20140107942

PATIENT
  Age: 50 Year
  Sex: Female
  Weight: 47 kg

DRUGS (7)
  1. SIMPONI [Suspect]
     Indication: RHEUMATOID ARTHRITIS
     Route: 058
     Dates: start: 20131001
  2. SIMPONI [Suspect]
     Indication: RHEUMATOID ARTHRITIS
     Dosage: CYCLE 7 TO CYCLE 8
     Route: 058
     Dates: start: 20130723, end: 20130820
  3. SIMPONI [Suspect]
     Indication: RHEUMATOID ARTHRITIS
     Dosage: CYCLES 1 TO CYCLES 6
     Route: 058
     Dates: start: 20111212, end: 20130528
  4. METHOTREXATE [Concomitant]
     Indication: RHEUMATOID ARTHRITIS
     Route: 048
     Dates: start: 200601
  5. METHOTREXATE [Concomitant]
     Indication: RHEUMATOID ARTHRITIS
     Route: 048
     Dates: start: 20110822, end: 20111024
  6. METHOTREXATE [Concomitant]
     Indication: RHEUMATOID ARTHRITIS
     Route: 048
     Dates: start: 20111025
  7. FOLIC ACID [Concomitant]
     Route: 048
     Dates: start: 200601

REACTIONS (1)
  - Pneumonia [Recovered/Resolved]
